FAERS Safety Report 5296944-1 (Version None)
Quarter: 2007Q1

REPORT INFORMATION
  Report Type: 
  Country: None (occurrence: None)
  Receive Date: 20070201
  Receipt Date: 20061005
  Transmission Date: 20070707
  Serious: No
  Sender: FDA-Public Use
  Company Number: 2006PV022565

PATIENT
  Age: 63 Year
  Sex: Male
  Weight: 140.1615 kg

DRUGS (11)
  1. BYETTA [Suspect]
     Indication: DIABETES MELLITUS NON-INSULIN-DEPENDENT
     Dosage: 10 MCG;QD;SC
     Route: 058
     Dates: start: 20060801
  2. METFORMIN HCL [Concomitant]
  3. FLECAINIDE ACETATE [Concomitant]
  4. TRICOR [Concomitant]
  5. TOPROL-XL [Concomitant]
  6. COZAAR [Concomitant]
  7. LEVOTHYROXINE SODIUM [Concomitant]
  8. ZETIA [Concomitant]
  9. CELEBREX [Concomitant]
  10. ALLEGRA [Concomitant]
  11. COUMADIN [Concomitant]

REACTIONS (1)
  - INTERNATIONAL NORMALISED RATIO DECREASED [None]
